FAERS Safety Report 25659949 (Version 1)
Quarter: 2025Q3

REPORT INFORMATION
  Report Type: Spontaneous
  Country: CN (occurrence: CN)
  Receive Date: 20250808
  Receipt Date: 20250808
  Transmission Date: 20251021
  Serious: Yes (Other)
  Sender: COHERUS
  Company Number: CN-SHANGHAI JUNSHI BIOSCIENCES CO., LTD.-CN2025015089

PATIENT

DRUGS (5)
  1. TORIPALIMAB [Suspect]
     Active Substance: TORIPALIMAB
     Indication: Tongue neoplasm malignant stage unspecified
     Dosage: 240 MG, EVERY 21 DAYS, D1
     Route: 041
     Dates: start: 20250619, end: 20250619
  2. CAPECITABINE [Suspect]
     Active Substance: CAPECITABINE
     Indication: Tongue neoplasm malignant stage unspecified
     Dosage: 1.5 G IN THE MORNING, 1 G IN THE EVENING, EVERY 21 DAYS, D1-D14
     Route: 041
     Dates: start: 20250619, end: 20250702
  3. CISPLATIN [Suspect]
     Active Substance: CISPLATIN
     Indication: Tongue neoplasm malignant stage unspecified
     Dosage: 30 MG, EVERY 21 DAYS, D1-D3
     Route: 041
     Dates: start: 20250619, end: 20250621
  4. SODIUM CHLORIDE [Concomitant]
     Active Substance: SODIUM CHLORIDE
     Indication: Medication dilution
     Dosage: 250 ML, EVERY 21 DAYS, D1
     Route: 041
     Dates: start: 20250619, end: 20250621
  5. SODIUM CHLORIDE [Concomitant]
     Active Substance: SODIUM CHLORIDE
     Dosage: 100 ML, EVERY 21 DAYS, D1
     Route: 041
     Dates: start: 20250619, end: 20250619

REACTIONS (1)
  - Myelosuppression [Recovering/Resolving]

NARRATIVE: CASE EVENT DATE: 20250710
